FAERS Safety Report 8620907-9 (Version None)
Quarter: 2012Q3

REPORT INFORMATION
  Report Type: 
  Country: None (occurrence: None)
  Receive Date: 20120824
  Receipt Date: 20120821
  Transmission Date: 20120928
  Serious: Yes (Hospitalization)
  Sender: FDA-Public Use
  Company Number: US-AMGEN-USACT2012050366

PATIENT
  Age: 87 Year
  Sex: Female
  Weight: 55.918 kg

DRUGS (9)
  1. HYDROCHLOROTHIAZIDE [Concomitant]
     Dosage: 12.5 MG, QD
     Route: 048
  2. PROPRANOLOL [Concomitant]
     Dosage: 10 MG, TID
     Route: 048
  3. VITAMIN D [Concomitant]
     Dosage: UNK UNK, QD
     Route: 048
  4. CALTRATE +D [Concomitant]
     Dosage: UNK UNK, BID
     Route: 048
  5. ZOLPIDEM TARTATE [Concomitant]
     Dosage: 10 MG, UNK
     Route: 048
  6. LIDODERM [Concomitant]
  7. LEVOTHYROXINE SODIUM [Concomitant]
     Dosage: 112 MUG, UNK
     Route: 048
  8. SERTRALINE HYDROCHLORIDE [Concomitant]
     Dosage: 100 MG, UNK
     Route: 048
  9. DENOSUMAB [Suspect]
     Indication: OSTEOPOROSIS
     Dosage: UNK
     Dates: start: 20110101

REACTIONS (1)
  - URINARY TRACT INFECTION [None]
